FAERS Safety Report 8047422-8 (Version None)
Quarter: 2012Q1

REPORT INFORMATION
  Report Type: 
  Country: None (occurrence: None)
  Receive Date: 20120116
  Receipt Date: 20120104
  Transmission Date: 20120608
  Serious: Yes (Hospitalization)
  Sender: FDA-Public Use
  Company Number: FR-BRISTOL-MYERS SQUIBB COMPANY-16334369

PATIENT
  Age: 61 Year
  Sex: Male

DRUGS (11)
  1. SECTRAL [Concomitant]
  2. PERINDOPRIL ERBUMINE [Concomitant]
  3. REYATAZ [Suspect]
     Indication: HIV INFECTION
     Route: 048
     Dates: start: 20090427
  4. SUSTIVA [Suspect]
     Indication: HIV INFECTION
     Route: 048
     Dates: start: 20090427
  5. ISENTRESS [Suspect]
     Indication: HIV INFECTION
     Route: 048
     Dates: start: 20090427, end: 20111209
  6. NORVIR [Suspect]
     Indication: HIV INFECTION
     Route: 048
     Dates: start: 20090427
  7. PLAVIX [Concomitant]
     Dosage: 1DF=PLAVIX 75 UNIT NOT SPECIFIED
  8. ASPEGIC 325 [Concomitant]
     Dosage: ASPEGIC 100 UNIT NOT SPECIFIED
  9. PRAVASTATIN [Concomitant]
     Dosage: 1DF=ELISOR 40 UNIT NOT SPECIFIED
  10. ASPIRIN [Concomitant]
     Dosage: KARDEGIC  75 UNIT NOT SPECIFIED
  11. BACTRIM [Suspect]

REACTIONS (6)
  - NEPHROTIC SYNDROME [None]
  - CHOLESTASIS [None]
  - TUBULOINTERSTITIAL NEPHRITIS [None]
  - EOSINOPHILIA [None]
  - CYTOLYTIC HEPATITIS [None]
  - GLOMERULONEPHRITIS MEMBRANOUS [None]
